FAERS Safety Report 13762460 (Version 3)
Quarter: 2017Q3

REPORT INFORMATION
  Report Type: Spontaneous
  Country: US (occurrence: US)
  Receive Date: 20170718
  Receipt Date: 20170831
  Transmission Date: 20171127
  Serious: No
  Sender: FDA-Public Use
  Company Number: US-PFIZER INC-2017307888

PATIENT
  Age: 41 Year
  Sex: Female
  Weight: 63.5 kg

DRUGS (1)
  1. FLAGYL [Suspect]
     Active Substance: METRONIDAZOLE\METRONIDAZOLE HYDROCHLORIDE
     Indication: GASTROINTESTINAL BACTERIAL OVERGROWTH
     Dosage: 250 MG, 3X/DAY
     Dates: start: 20170614, end: 20170624

REACTIONS (18)
  - Gingival swelling [Recovered/Resolved]
  - Vision blurred [Recovered/Resolved]
  - Urticaria [Recovered/Resolved]
  - Photophobia [Not Recovered/Not Resolved]
  - Lacrimation increased [Recovered/Resolved]
  - Ocular hyperaemia [Not Recovered/Not Resolved]
  - Stomatitis [Recovered/Resolved]
  - Dry eye [Recovered/Resolved]
  - Rash macular [Recovered/Resolved]
  - Eye irritation [Not Recovered/Not Resolved]
  - Drug hypersensitivity [Unknown]
  - Visual impairment [Unknown]
  - Disturbance in attention [Recovered/Resolved]
  - Vision blurred [Not Recovered/Not Resolved]
  - Ocular discomfort [Unknown]
  - Gingival pain [Recovered/Resolved]
  - Hypoaesthesia oral [Recovered/Resolved]
  - Eye pain [Recovered/Resolved]

NARRATIVE: CASE EVENT DATE: 201706
